FAERS Safety Report 20589483 (Version 1)
Quarter: 2022Q1

REPORT INFORMATION
  Report Type: Spontaneous
  Country: US (occurrence: None)
  Receive Date: 20220314
  Receipt Date: 20220314
  Transmission Date: 20220423
  Serious: No
  Sender: FDA-Public Use
  Company Number: None

PATIENT
  Age: 66 Year
  Sex: Male

DRUGS (1)
  1. APIXABAN [Suspect]
     Active Substance: APIXABAN
     Dosage: FREQUENCY : TWICE A DAY;?
     Route: 048

REACTIONS (7)
  - Blood urine present [None]
  - Packed red blood cell transfusion [None]
  - Gastrointestinal haemorrhage [None]
  - Procedural haemorrhage [None]
  - Intestinal polyp [None]
  - Iron deficiency anaemia [None]
  - Blood loss anaemia [None]

NARRATIVE: CASE EVENT DATE: 20220109
